FAERS Safety Report 5503437-2 (Version None)
Quarter: 2007Q4

REPORT INFORMATION
  Report Type: 
  Country: None (occurrence: None)
  Receive Date: 20071031
  Receipt Date: 20071024
  Transmission Date: 20080405
  Serious: Yes (Life-Threatening, Hospitalization)
  Sender: FDA-Public Use
  Company Number: DE-ELI_LILLY_AND_COMPANY-DE200710003189

PATIENT
  Sex: Female

DRUGS (13)
  1. CYMBALTA [Suspect]
     Indication: DEPRESSION
     Dosage: 30 MG, DAILY (1/D)
     Route: 048
     Dates: start: 20070509, end: 20070515
  2. AMLODIPINE [Concomitant]
     Dosage: 5 MG, DAILY (2/D)
     Route: 048
  3. NEXIUM [Concomitant]
     Dosage: 40 MG, DAILY (1/D)
     Route: 048
  4. MCP [Concomitant]
     Indication: NAUSEA
     Dosage: 60 DROPS
     Route: 048
  5. MUCOFALK [Concomitant]
     Indication: CONSTIPATION
     Dosage: UNK, AS NEEDED
     Route: 048
  6. ACTRAPID HM /00646004/ [Concomitant]
     Dosage: 2-10 IE
     Route: 058
  7. ATOSIL [Concomitant]
     Dosage: 10-20 GTT
     Route: 048
  8. EDRONAX [Concomitant]
     Dosage: 4 MG, DAILY (1/D)
     Route: 048
  9. HALDOL [Concomitant]
     Dosage: 5 MG, BOLUS AS NEEDED
     Route: 065
  10. PANTOPRAZOLE SODIUM [Concomitant]
     Dosage: 40 MG, EACH MORNING
     Route: 048
  11. ACETAMINOPHEN [Concomitant]
     Dosage: 500-1000 MG, AS NEEDED
     Route: 048
  12. PERFALGAN [Concomitant]
     Dosage: 500-1000 MG, AS NEEDED
     Route: 065
  13. GLUCOSE [Concomitant]
     Dosage: 5 %, UNKNOWN
     Route: 065

REACTIONS (7)
  - DEHYDRATION [None]
  - GENERAL PHYSICAL HEALTH DETERIORATION [None]
  - HEPATIC STEATOSIS [None]
  - HYPERTENSION [None]
  - HYPONATRAEMIA [None]
  - SCOLIOSIS [None]
  - SOMNOLENCE [None]
